FAERS Safety Report 7818112-9 (Version None)
Quarter: 2011Q4

REPORT INFORMATION
  Report Type: 
  Country: None (occurrence: None)
  Receive Date: 20111017
  Receipt Date: 20111007
  Transmission Date: 20120403
  Serious: Yes (Hospitalization, Other)
  Sender: FDA-Public Use
  Company Number: US-CELGENEUS-163-21880-11053192

PATIENT
  Sex: Male

DRUGS (11)
  1. AMIODARONE HCL [Concomitant]
     Dosage: 300 MILLIGRAM
     Route: 048
  2. DOCUSATE SODIUM [Concomitant]
     Dosage: 250 MILLIGRAM
     Route: 048
  3. REVLIMID [Suspect]
     Dosage: 5 MILLIGRAM
     Route: 048
     Dates: start: 20110617
  4. GABAPENTIN [Concomitant]
     Dosage: 300 MILLIGRAM
     Route: 048
  5. ACETAMINOPHEN AND HYDROCODONE BITARTRATE [Concomitant]
     Indication: PAIN
     Dosage: 325MG-10MG
     Route: 048
  6. REVLIMID [Suspect]
     Dosage: 5 MILLIGRAM
     Route: 048
     Dates: start: 20110301, end: 20110101
  7. NORCO [Concomitant]
     Dosage: 7.5 MG-325MG
     Route: 048
  8. ASPIRIN [Concomitant]
     Dosage: 81 MILLIGRAM
     Route: 065
  9. REVLIMID [Suspect]
     Dosage: 10 MILLIGRAM
     Route: 048
     Dates: start: 20110227, end: 20110101
  10. FAMOTIDINE [Concomitant]
     Dosage: 20 MILLIGRAM
     Route: 048
  11. LEVOTHROID [Concomitant]
     Dosage: 112 MICROGRAM
     Route: 048

REACTIONS (4)
  - PULMONARY EMBOLISM [None]
  - FALL [None]
  - HUMERUS FRACTURE [None]
  - CONTUSION [None]
